FAERS Safety Report 12529676 (Version 1)
Quarter: 2016Q3

REPORT INFORMATION
  Report Type: Spontaneous
  Country: JP (occurrence: JP)
  Receive Date: 20160706
  Receipt Date: 20160706
  Transmission Date: 20161109
  Serious: Yes (Other)
  Sender: FDA-Public Use
  Company Number: JP-CIPLA LTD.-2016JP07885

PATIENT

DRUGS (3)
  1. TSU-68 [Suspect]
     Active Substance: UNSPECIFIED INGREDIENT
     Indication: NON-SMALL CELL LUNG CANCER
     Dosage: 400 MG, BID, 21 CONSECUTIVE DAYS
     Route: 048
  2. PACLITAXEL. [Suspect]
     Active Substance: PACLITAXEL
     Indication: NON-SMALL CELL LUNG CANCER
     Dosage: 200 MG/M2, FOR 3 HOURS, ON DAY 1 OF EACH 3-WEEK CYCLE
     Route: 042
  3. CARBOPLATIN. [Suspect]
     Active Substance: CARBOPLATIN
     Indication: NON-SMALL CELL LUNG CANCER
     Dosage: AUC OF 6 MG.MIN/ML FOR 1 HOUR, ON DAY 1 OF EACH 3 WEEK CYCLE
     Route: 042

REACTIONS (1)
  - Oedema peripheral [Unknown]
